FAERS Safety Report 9301362 (Version 1)
Quarter: 2013Q2

REPORT INFORMATION
  Report Type: Spontaneous
  Country: US (occurrence: None)
  Receive Date: 20130520
  Receipt Date: 20130520
  Transmission Date: 20140414
  Serious: Yes (Hospitalization)
  Sender: FDA-Public Use
  Company Number: None

PATIENT
  Age: 66 Year
  Sex: Male
  Weight: 92.7 kg

DRUGS (1)
  1. CISPLATIN [Suspect]

REACTIONS (7)
  - Mucosal inflammation [None]
  - Oral pain [None]
  - Confusional state [None]
  - Hypoxia [None]
  - Leukocytosis [None]
  - Tachycardia [None]
  - Hypotension [None]
